FAERS Safety Report 14848142 (Version 1)
Quarter: 2018Q2

REPORT INFORMATION
  Report Type: Spontaneous
  Country: US (occurrence: US)
  Receive Date: 20180504
  Receipt Date: 20180504
  Transmission Date: 20180711
  Serious: No
  Sender: FDA-Public Use
  Company Number: US-PFIZER INC-2018180841

PATIENT
  Sex: Female

DRUGS (3)
  1. NATURE-THROID [Concomitant]
     Active Substance: THYROID, PORCINE
     Dosage: ONE AND A HALF GRAIN
  2. CELECOXIB. [Suspect]
     Active Substance: CELECOXIB
     Indication: PAIN
  3. CELECOXIB. [Suspect]
     Active Substance: CELECOXIB
     Indication: RHEUMATOID ARTHRITIS
     Dosage: 200 MG, AS NEEDED (DAILY 1 TO 2; UP TO 2)

REACTIONS (4)
  - Urticaria [Recovered/Resolved]
  - Pruritus [Recovered/Resolved]
  - Malaise [Unknown]
  - Hypersensitivity [Recovered/Resolved]
